FAERS Safety Report 25638387 (Version 1)
Quarter: 2025Q3

REPORT INFORMATION
  Report Type: Spontaneous
  Country: US (occurrence: None)
  Receive Date: 20250801
  Receipt Date: 20250801
  Transmission Date: 20251020
  Serious: Yes (Hospitalization, Other)
  Sender: FDA-CTU
  Company Number: None

PATIENT
  Age: 73 Year
  Sex: Male
  Weight: 67.6 kg

DRUGS (1)
  1. VENOFER [Suspect]
     Active Substance: IRON SUCROSE
     Route: 042
     Dates: start: 20250508, end: 20250508

REACTIONS (7)
  - Infusion related reaction [None]
  - Syncope [None]
  - Pulse abnormal [None]
  - Dyspnoea [None]
  - Oxygen saturation decreased [None]
  - Incontinence [None]
  - Abdominal discomfort [None]

NARRATIVE: CASE EVENT DATE: 20250508
